FAERS Safety Report 6929147-2 (Version None)
Quarter: 2010Q3

REPORT INFORMATION
  Report Type: 
  Country: None (occurrence: None)
  Receive Date: 20100817
  Receipt Date: 20100816
  Transmission Date: 20110219
  Serious: Yes (Hospitalization)
  Sender: FDA-Public Use
  Company Number: FR-MERCK-1008FRA00053

PATIENT
  Age: 79 Year
  Sex: Female

DRUGS (6)
  1. NOROXIN [Suspect]
     Indication: URINARY TRACT INFECTION
     Route: 048
     Dates: start: 20100624, end: 20100704
  2. ROSUVASTATIN CALCIUM [Concomitant]
     Indication: DYSLIPIDAEMIA
     Route: 048
     Dates: start: 20100624, end: 20100708
  3. BISOPROLOL FUMARATE AND HYDROCHLOROTHIAZIDE [Concomitant]
     Indication: HYPERTENSION
     Route: 048
  4. ZOPICLONE [Concomitant]
     Route: 048
  5. ACETAMINOPHEN [Concomitant]
     Route: 048
  6. DESLORATADINE [Concomitant]
     Route: 048

REACTIONS (3)
  - CHEILITIS [None]
  - DRUG ERUPTION [None]
  - OROPHARYNGEAL PAIN [None]
